FAERS Safety Report 9700172 (Version 2)
Quarter: 2013Q4

REPORT INFORMATION
  Report Type: Spontaneous
  Country: US (occurrence: US)
  Receive Date: 20131121
  Receipt Date: 20131126
  Transmission Date: 20140711
  Serious: No
  Sender: FDA-Public Use
  Company Number: US-009507513-1311USA004768

PATIENT
  Age: 58 Year
  Sex: Female

DRUGS (2)
  1. AZASITE [Suspect]
     Indication: OCULAR HYPERAEMIA
     Dosage: ONE DROP IN EACH EYE ONCE DAILY
     Route: 047
     Dates: start: 201309
  2. AZASITE [Suspect]
     Dosage: ONE DROP IN EACH EYE ONCE DAILY
     Route: 047
     Dates: start: 201309

REACTIONS (3)
  - Ocular hyperaemia [Not Recovered/Not Resolved]
  - Drug dose omission [Unknown]
  - Product quality issue [Unknown]
